FAERS Safety Report 4944702-7 (Version None)
Quarter: 2006Q1

REPORT INFORMATION
  Report Type: 
  Country: None (occurrence: None)
  Receive Date: 20060315
  Receipt Date: 20051220
  Transmission Date: 20060701
  Serious: Yes (Hospitalization, Other)
  Sender: FDA-Public Use
  Company Number: US-ABBOTT-05P-163-0320216-00

PATIENT
  Sex: Female
  Weight: 74.002 kg

DRUGS (2)
  1. HUMIRA [Suspect]
     Indication: RHEUMATOID ARTHRITIS
     Route: 058
     Dates: start: 20050901, end: 20051101
  2. UNIDENTIFIED HYPERTENSION PILL [Concomitant]
     Indication: HYPERTENSION
     Route: 048

REACTIONS (1)
  - JOINT DESTRUCTION [None]
